FAERS Safety Report 14357841 (Version 2)
Quarter: 2018Q1

REPORT INFORMATION
  Report Type: Spontaneous
  Country: None (occurrence: US)
  Receive Date: 20180105
  Receipt Date: 20180201
  Transmission Date: 20180509
  Serious: No
  Sender: FDA-Public Use
  Company Number: US-MERZ NORTH AMERICA, INC.-18MRZ-00006

PATIENT
  Sex: Female

DRUGS (1)
  1. XEOMIN [Suspect]
     Active Substance: INCOBOTULINUMTOXINA
     Indication: SKIN WRINKLING
     Dosage: 4 UNITS PER SIDE
     Route: 065
     Dates: start: 20171215, end: 20171215

REACTIONS (5)
  - Contusion [Unknown]
  - Swelling [Recovering/Resolving]
  - Erythema [Unknown]
  - Eye swelling [Unknown]
  - Skin discolouration [Recovering/Resolving]
